FAERS Safety Report 5718985-X (Version None)
Quarter: 2008Q2

REPORT INFORMATION
  Report Type: 
  Country: None (occurrence: None)
  Receive Date: 20080425
  Receipt Date: 20080418
  Transmission Date: 20081010
  Serious: Yes (Other)
  Sender: FDA-Public Use
  Company Number: PHHY2008JP05108

PATIENT
  Age: 20 Year
  Sex: Male

DRUGS (2)
  1. PABRON NASAL INFECTION CAPSULE [Suspect]
     Dosage: UNK, UNK
     Route: 048
     Dates: start: 20080319
  2. PABRON SC [Suspect]
     Dates: start: 20080320

REACTIONS (3)
  - ERYTHEMA MULTIFORME [None]
  - PYREXIA [None]
  - RASH [None]
